FAERS Safety Report 10397616 (Version 1)
Quarter: 2014Q3

REPORT INFORMATION
  Report Type: Spontaneous
  Country: US (occurrence: US)
  Receive Date: 20140821
  Receipt Date: 20140821
  Transmission Date: 20150326
  Serious: Yes (Other)
  Sender: FDA-Public Use
  Company Number: PHHY2014US100273

PATIENT
  Age: 71 Year
  Sex: Female

DRUGS (3)
  1. TRIAMCINOLONE [Suspect]
     Active Substance: TRIAMCINOLONE
     Dosage: 40 MG, (1 ML)-MIXTURE OF 3 ML OF 1% LIDOCAINE AND 40MG TRIAMCINOLONE
     Route: 014
  2. LIDOCAINE. [Concomitant]
     Active Substance: LIDOCAINE
     Dosage: MIXTURE OF 3 ML OF 1% LIDOCAINE AND 40MG TRIAMCINOLON
  3. CORTICOSTEROIDS [Suspect]
     Active Substance: CORTICOSTEROID NOS
     Route: 008

REACTIONS (2)
  - Vaginal haemorrhage [Recovered/Resolved]
  - Uterine haemorrhage [Unknown]
